FAERS Safety Report 7808643-X (Version None)
Quarter: 2011Q4

REPORT INFORMATION
  Report Type: 
  Country: None (occurrence: None)
  Receive Date: 20111012
  Receipt Date: 20111006
  Transmission Date: 20120403
  Serious: Yes (Other)
  Sender: FDA-Public Use
  Company Number: US-BAYER-2011-074328

PATIENT
  Age: 68 Year
  Sex: Male

DRUGS (4)
  1. ATENOLOL [Concomitant]
     Indication: PRODUCT USED FOR UNKNOWN INDICATION
  2. METFORMIN HYDROCHLORIDE [Concomitant]
     Indication: PRODUCT USED FOR UNKNOWN INDICATION
     Dosage: UNK
     Route: 048
     Dates: start: 20110701
  3. SORAFENIB (RAF KINASE INHIBITOR) [Suspect]
     Indication: RENAL CELL CARCINOMA
     Dosage: 400 MG, BID
     Route: 048
     Dates: start: 20110805
  4. MELATONIN [Concomitant]
     Dosage: 4 DF, HS
     Route: 048
     Dates: start: 20110801

REACTIONS (10)
  - PRURITUS [None]
  - BLOOD PHOSPHORUS INCREASED [None]
  - ERYTHEMA [None]
  - THERAPEUTIC RESPONSE UNEXPECTED [None]
  - ABDOMINAL PAIN [None]
  - DRY SKIN [None]
  - SKIN EXFOLIATION [None]
  - FATIGUE [None]
  - BLOOD PRESSURE ABNORMAL [None]
  - NAUSEA [None]
